FAERS Safety Report 25271042 (Version 1)
Quarter: 2025Q2

REPORT INFORMATION
  Report Type: Spontaneous
  Country: US (occurrence: US)
  Receive Date: 20250506
  Receipt Date: 20250506
  Transmission Date: 20250717
  Serious: No
  Sender: ABBVIE
  Company Number: US-ABBVIE-6259588

PATIENT
  Sex: Female

DRUGS (1)
  1. PRED FORTE [Suspect]
     Active Substance: PREDNISOLONE ACETATE
     Indication: Corneal transplant
     Route: 047

REACTIONS (1)
  - Off label use [Unknown]
